FAERS Safety Report 7694403-X (Version None)
Quarter: 2011Q3

REPORT INFORMATION
  Report Type: 
  Country: None (occurrence: None)
  Receive Date: 20110819
  Receipt Date: 20110812
  Transmission Date: 20111222
  Serious: Yes (Other)
  Sender: FDA-Public Use
  Company Number: US-US-EMD SERONO, INC.-7076499

PATIENT
  Sex: Female

DRUGS (3)
  1. UNSPECIFIED MEDICATION [Concomitant]
     Indication: VERTIGO
  2. REBIF [Suspect]
     Indication: PRODUCT USED FOR UNKNOWN INDICATION
     Route: 058
     Dates: start: 20110209
  3. REBIF [Suspect]
     Route: 058

REACTIONS (1)
  - VASCULAR INSUFFICIENCY [None]
